FAERS Safety Report 9260295 (Version 1)
Quarter: 2013Q2

REPORT INFORMATION
  Report Type: Other
  Country: GB (occurrence: GB)
  Receive Date: 20130429
  Receipt Date: 20130429
  Transmission Date: 20140414
  Serious: Yes (Death, Hospitalization)
  Sender: FDA-Public Use
  Company Number: GB-MILLENNIUM PHARMACEUTICALS, INC.-2013-02992

PATIENT
  Sex: 0

DRUGS (15)
  1. VELCADE [Suspect]
     Indication: PLASMA CELL MYELOMA
     Dosage: 1.8 MG, UNK
     Route: 042
     Dates: start: 20121106
  2. VELCADE [Suspect]
     Dosage: 2.4 MG, UNK
     Route: 042
     Dates: start: 20121127
  3. VELCADE [Suspect]
     Dosage: 2.5 MG, UNK
     Route: 042
     Dates: start: 20121218
  4. VELCADE [Suspect]
     Dosage: 2.5 MG, UNK
     Route: 042
     Dates: start: 20130111
  5. VELCADE [Suspect]
     Dosage: 2.5 MG, UNK
     Route: 042
     Dates: start: 20130204, end: 20130211
  6. ALLOPURINOL [Concomitant]
     Indication: TUMOUR LYSIS SYNDROME
     Dosage: 300 MG, QD
     Route: 048
     Dates: start: 20121106, end: 20121127
  7. ASPIRIN [Concomitant]
     Dosage: 75 MG, QD
     Route: 048
  8. BACLOFEN [Concomitant]
     Dosage: 5 MG, TID
     Route: 048
  9. DEXAMETHASONE [Concomitant]
     Indication: PLASMA CELL MYELOMA
     Dosage: 40 MG, QD
  10. MORPHINE [Concomitant]
     Dosage: 20 MG, BID
     Route: 048
  11. OMEPRAZOLE [Concomitant]
     Dosage: 20 MG, QD
     Route: 048
  12. ORAMORPH [Concomitant]
     Dosage: 10 ML, PRN
     Route: 048
  13. PARACETAMOL [Concomitant]
     Dosage: 1 G, QID
     Route: 048
  14. PROMETHAZINE [Concomitant]
     Dosage: 25 MG, UNK
     Route: 048
  15. SENNA                              /00142201/ [Concomitant]
     Dosage: UNK
     Route: 048

REACTIONS (3)
  - Pulmonary hypertension [Fatal]
  - Lower respiratory tract infection [Fatal]
  - Sepsis [Not Recovered/Not Resolved]
